FAERS Safety Report 25762320 (Version 1)
Quarter: 2025Q3

REPORT INFORMATION
  Report Type: Spontaneous
  Country: US (occurrence: None)
  Receive Date: 20250903
  Receipt Date: 20250903
  Transmission Date: 20251020
  Serious: Yes (Other)
  Sender: FDA-CTU
  Company Number: None

PATIENT
  Age: 37 Year
  Sex: Female
  Weight: 136 kg

DRUGS (4)
  1. OZEMPIC [Suspect]
     Active Substance: SEMAGLUTIDE
     Indication: Diabetes mellitus
     Route: 058
     Dates: start: 20241105, end: 20250806
  2. OZEMPIC [Suspect]
     Active Substance: SEMAGLUTIDE
     Indication: Obesity
  3. Jardiance 25 mg daily [Concomitant]
     Dates: start: 20220504
  4. Metformin XR 500 mg 2 tablets twice daily [Concomitant]
     Dates: start: 20211117

REACTIONS (5)
  - Drug intolerance [None]
  - Blood pressure systolic increased [None]
  - Nausea [None]
  - Headache [None]
  - Therapy cessation [None]

NARRATIVE: CASE EVENT DATE: 20250806
